FAERS Safety Report 7070633-5 (Version None)
Quarter: 2010Q4

REPORT INFORMATION
  Report Type: 
  Country: None (occurrence: None)
  Receive Date: 20101029
  Receipt Date: 20101027
  Transmission Date: 20110411
  Serious: Yes (Hospitalization)
  Sender: FDA-Public Use
  Company Number: RU-PFIZER INC-2010136287

PATIENT
  Age: 64 Year
  Sex: Male

DRUGS (3)
  1. DIFLUCAN [Suspect]
     Indication: FUNGAL CYSTITIS
     Dosage: 100 MG, 1X/DAY
     Route: 048
     Dates: start: 20100901, end: 20100901
  2. DIFLUCAN [Suspect]
     Indication: PROSTATITIS
  3. CONCOR [Concomitant]
     Indication: HYPERTENSION
     Route: 048

REACTIONS (3)
  - CYSTITIS [None]
  - HEADACHE [None]
  - HYPERTHERMIA [None]
